FAERS Safety Report 20642159 (Version 1)
Quarter: 2022Q1

REPORT INFORMATION
  Report Type: Spontaneous
  Country: GB (occurrence: GB)
  Receive Date: 20220328
  Receipt Date: 20220328
  Transmission Date: 20220423
  Serious: Yes (Other)
  Sender: FDA-Public Use
  Company Number: None

PATIENT
  Age: 63 Year
  Sex: Female
  Weight: 73 kg

DRUGS (2)
  1. ATORVASTATIN [Suspect]
     Active Substance: ATORVASTATIN
     Indication: Low density lipoprotein
     Dates: start: 20201115, end: 20210915
  2. EZETIMIBE [Concomitant]
     Active Substance: EZETIMIBE
     Indication: Low density lipoprotein

REACTIONS (4)
  - Type 2 diabetes mellitus [Recovered/Resolved with Sequelae]
  - Gout [Recovered/Resolved with Sequelae]
  - Eye oedema [Not Recovered/Not Resolved]
  - Arthralgia [Recovering/Resolving]

NARRATIVE: CASE EVENT DATE: 20210101
